FAERS Safety Report 6521623-X (Version None)
Quarter: 2009Q4

REPORT INFORMATION
  Report Type: 
  Country: None (occurrence: None)
  Receive Date: 20091230
  Receipt Date: 20091217
  Transmission Date: 20100525
  Serious: Yes (Other)
  Sender: FDA-Public Use
  Company Number: PHEH2009US14227

PATIENT
  Sex: Female

DRUGS (2)
  1. RITALIN [Suspect]
     Dosage: 20 MG, QID
  2. LEXAPRO [Concomitant]

REACTIONS (3)
  - CATAPLEXY [None]
  - DRUG INEFFECTIVE [None]
  - FALL [None]
